FAERS Safety Report 5700935-3 (Version None)
Quarter: 2008Q2

REPORT INFORMATION
  Report Type: 
  Country: None (occurrence: None)
  Receive Date: 20080410
  Receipt Date: 20080407
  Transmission Date: 20081010
  Serious: Yes (Death, Life-Threatening, Hospitalization)
  Sender: FDA-Public Use
  Company Number: B0514935A

PATIENT
  Age: 83 Year
  Sex: Male

DRUGS (7)
  1. ARIXTRA [Suspect]
     Indication: PULMONARY EMBOLISM
     Route: 058
     Dates: start: 20080110, end: 20080115
  2. COUMADIN [Suspect]
     Indication: PULMONARY EMBOLISM
     Route: 048
     Dates: start: 20080110, end: 20080119
  3. NEXIUM [Concomitant]
     Indication: ULCER
     Route: 048
     Dates: start: 20080114, end: 20080121
  4. MEMANTINE HCL [Concomitant]
     Indication: DEMENTIA ALZHEIMER'S TYPE
     Route: 048
     Dates: start: 20080105, end: 20080121
  5. PIPERACILLIN SODIUM AND TAZOBACTAM SODIUM [Concomitant]
     Indication: RESPIRATORY TRACT CONGESTION
     Route: 042
     Dates: start: 20080103, end: 20080112
  6. CIFLOX [Concomitant]
     Indication: RESPIRATORY TRACT CONGESTION
     Route: 042
     Dates: start: 20080103, end: 20080112
  7. TARGOCID [Concomitant]
     Indication: RESPIRATORY TRACT CONGESTION
     Route: 042
     Dates: start: 20080103, end: 20080112

REACTIONS (9)
  - BLOOD PRESSURE DECREASED [None]
  - GENERAL PHYSICAL HEALTH DETERIORATION [None]
  - HAEMATOMA [None]
  - HAEMORRHAGIC DISORDER [None]
  - INJECTION SITE HAEMORRHAGE [None]
  - OXYGEN SATURATION DECREASED [None]
  - POST PROCEDURAL HAEMORRHAGE [None]
  - SEPSIS [None]
  - TACHYCARDIA [None]
